FAERS Safety Report 5079879-9 (Version None)
Quarter: 2006Q3

REPORT INFORMATION
  Report Type: 
  Country: None (occurrence: None)
  Receive Date: 20060809
  Receipt Date: 20060724
  Transmission Date: 20061208
  Serious: Yes (Other)
  Sender: FDA-Public Use
  Company Number: TRP_0812_2006

PATIENT
  Age: 34 Year
  Sex: Female

DRUGS (6)
  1. RIBASPHERE [Suspect]
     Dosage: 800 MG QDAY PO
     Route: 048
     Dates: start: 20050207, end: 20050704
  2. PEG-INTRON/PEGINTERFERON ALFA-2B/ [Suspect]
     Dosage: 64 MCG QWK SC
     Route: 058
     Dates: start: 20050207, end: 20050704
  3. LORTAB               (ACETAMINOPHEN/ HYDROCODONE) [Concomitant]
  4. PRENATAL VITAMINS [Concomitant]
  5. ADVAIR DISKUS 100/50 [Concomitant]
  6. PROVENTIL [Concomitant]

REACTIONS (2)
  - DRUG EXPOSURE DURING PREGNANCY [None]
  - HEART DISEASE CONGENITAL [None]
